FAERS Safety Report 14962730 (Version 1)
Quarter: 2018Q2

REPORT INFORMATION
  Report Type: Spontaneous
  Country: US (occurrence: US)
  Receive Date: 20180510
  Receipt Date: 20180510
  Transmission Date: 20180711
  Serious: No
  Sender: FDA-Public Use
  Company Number: None

PATIENT
  Sex: Male

DRUGS (11)
  1. ATORVASTATIN [Concomitant]
     Active Substance: ATORVASTATIN
  2. GLEOSTINE [Suspect]
     Active Substance: LOMUSTINE
     Indication: NEOPLASM MALIGNANT
     Dosage: 100 MG 2 CAPS 42 DAY; ORAL?
     Route: 048
     Dates: start: 20180330
  3. OMEPRAZOLE. [Concomitant]
     Active Substance: OMEPRAZOLE
  4. LEVETIRACETA [Concomitant]
  5. WALRFARIN [Concomitant]
  6. DEXAMETHASON [Concomitant]
     Active Substance: DEXAMETHASONE
  7. MEMANTINE. [Concomitant]
     Active Substance: MEMANTINE
  8. LEVOTHYROXIN [Concomitant]
     Active Substance: LEVOTHYROXINE
  9. HALOPERIDOL. [Concomitant]
     Active Substance: HALOPERIDOL
  10. METOPROLOL TARTRATE. [Concomitant]
     Active Substance: METOPROLOL TARTRATE
  11. APAP/CODEINE [Concomitant]
     Active Substance: ACETAMINOPHEN\CODEINE PHOSPHATE

REACTIONS (1)
  - Drug ineffective [None]
